FAERS Safety Report 6299213-6 (Version None)
Quarter: 2009Q3

REPORT INFORMATION
  Report Type: 
  Country: None (occurrence: None)
  Receive Date: 20090806
  Receipt Date: 20090728
  Transmission Date: 20100115
  Serious: Yes (Hospitalization, Other)
  Sender: FDA-Public Use
  Company Number: DE-AMGEN-UK357618

PATIENT
  Sex: Female
  Weight: 88 kg

DRUGS (5)
  1. NPLATE [Suspect]
     Route: 058
     Dates: start: 20090610
  2. L-THYROXIN [Concomitant]
     Route: 048
  3. AMLODIPINE [Concomitant]
     Route: 048
  4. CATAPRESAN [Concomitant]
     Route: 048
  5. CARVEDILOL [Concomitant]
     Route: 048

REACTIONS (5)
  - HAEMORRHAGE [None]
  - MUCOSAL HAEMORRHAGE [None]
  - PETECHIAE [None]
  - PLATELET COUNT ABNORMAL [None]
  - PLATELET COUNT DECREASED [None]
